FAERS Safety Report 13554493 (Version 7)
Quarter: 2020Q4

REPORT INFORMATION
  Report Type: Spontaneous
  Country: US (occurrence: US)
  Receive Date: 20170517
  Receipt Date: 20201214
  Transmission Date: 20210113
  Serious: Yes (Other)
  Sender: FDA-Public Use
  Company Number: US-PFIZER INC-2017210684

PATIENT
  Age: 69 Year
  Sex: Female
  Weight: 61 kg

DRUGS (9)
  1. ROSUVASTATIN CALCIUM. [Concomitant]
     Active Substance: ROSUVASTATIN CALCIUM
     Indication: BLOOD CHOLESTEROL INCREASED
     Dosage: 10 MG, 1X/DAY
     Route: 048
  2. RAPAMUNE [Suspect]
     Active Substance: SIROLIMUS
     Dosage: 1 MG, 1X/DAY
     Dates: start: 202006
  3. GABAPENTIN. [Concomitant]
     Active Substance: GABAPENTIN
     Indication: NEUROPATHY PERIPHERAL
     Dosage: 1200 MG, 3X/DAY
     Route: 048
     Dates: start: 2004
  4. CALCIUM WITH VITAMIN D3 [Concomitant]
     Active Substance: CALCIUM CARBONATE\CHOLECALCIFEROL
     Dosage: 2 DF, DAILY
  5. VASCEPA [Concomitant]
     Active Substance: ICOSAPENT ETHYL
     Indication: BLOOD CHOLESTEROL ABNORMAL
     Dosage: 2 G, 2X/DAY (1 GRAM CLEAR CAPSULE TWO IN THE MORNING AND TWO AT NIGHT)
  6. RAPAMUNE [Suspect]
     Active Substance: SIROLIMUS
     Indication: PROPHYLAXIS AGAINST TRANSPLANT REJECTION
     Dosage: 1 MG, 2X/DAY (2MG DAILY)
     Route: 048
  7. DAILY VITAMINS [Concomitant]
     Active Substance: VITAMINS
  8. METOPROLOL. [Concomitant]
     Active Substance: METOPROLOL
     Indication: HYPERTENSION
     Dosage: 50 MG, 2X/DAY
  9. BABY ASPIRIN [Concomitant]
     Active Substance: ASPIRIN
     Dosage: 80 MG, DAILY

REACTIONS (9)
  - Fatigue [Unknown]
  - Gastroenteritis viral [Recovered/Resolved]
  - Pharyngitis streptococcal [Recovered/Resolved]
  - Product use in unapproved indication [Unknown]
  - Drug level abnormal [Unknown]
  - Off label use [Unknown]
  - Blood pressure abnormal [Unknown]
  - Laboratory test abnormal [Unknown]
  - Headache [Unknown]

NARRATIVE: CASE EVENT DATE: 201704
